FAERS Safety Report 5411140-2 (Version None)
Quarter: 2007Q3

REPORT INFORMATION
  Report Type: 
  Country: None (occurrence: None)
  Receive Date: 20070808
  Receipt Date: 20070802
  Transmission Date: 20080115
  Serious: Yes (Death, Life-Threatening)
  Sender: FDA-Public Use
  Company Number: TIF2004A00041

PATIENT
  Age: 42 Year
  Sex: Female

DRUGS (21)
  1. LANSOX (LANSOPRAZOLE)(CAPSULES) [Suspect]
     Indication: HAEMORRHAGE
     Dosage: 30 MG (15 MG,2 IN 1 D) , ORAL
     Route: 048
     Dates: start: 20041119, end: 20041121
  2. CARNITENE (CARNITINE HYDROCHLORIDE) (INJECTION) [Suspect]
     Indication: ANAEMIA
     Dosage: 2 G (2 G, 1 IN 1 D), INTRAVENOUS
     Route: 042
     Dates: start: 20041119, end: 20041119
  3. CALCIJEX [Concomitant]
  4. EUTIROX (LEVOTHYROXINE) (TABLETS) [Concomitant]
  5. ALUMINUM HYDROXIDE AND MAGNESIUM TRISILICATE [Concomitant]
  6. NEBILOX (NEBIVOLOL HYDROCHLORIDE)(TABLETS) [Concomitant]
  7. EPREX [Concomitant]
  8. RENAGEL (SEVELAMER HYDROCHLORIDE)(TABLETS) [Concomitant]
  9. SUCRALFIN (SUCRALFATE) (GRANULATE) [Concomitant]
  10. YOVIS (GRANULATE) [Concomitant]
  11. OMEPRAZOLE [Concomitant]
  12. IDROPLURIVIT (DROPS) [Concomitant]
  13. MYCOSTATIN (GARGLE) [Concomitant]
  14. TINSET 2.5% (DROPS) [Concomitant]
  15. PROEFFERALGAN (INJECTION) [Concomitant]
  16. METHYLENE BLUE 1% IN WATER SOLUTION [Concomitant]
  17. KIBERNIN (INJECTION) [Concomitant]
  18. OPHTHALMIC FILM [Concomitant]
  19. SALINE SOLUTION + SOLUMEDROL (INJECTION FOR INFUSION) [Concomitant]
  20. SALINE SOLUTION + ZANTAC ( INJECTION FOR INFUSION) [Concomitant]
  21. PARENTERAL NUTRITION (INJECTION FOR INFUSION) [Concomitant]

REACTIONS (8)
  - CARDIAC ARREST [None]
  - CONJUNCTIVITIS [None]
  - ERYTHEMA MULTIFORME [None]
  - FACE OEDEMA [None]
  - MUCOSAL INFLAMMATION [None]
  - STEVENS-JOHNSON SYNDROME [None]
  - STOMATITIS [None]
  - TOXIC EPIDERMAL NECROLYSIS [None]
